FAERS Safety Report 8134139-4 (Version None)
Quarter: 2012Q1

REPORT INFORMATION
  Report Type: 
  Country: None (occurrence: None)
  Receive Date: 20120207
  Receipt Date: 20120131
  Transmission Date: 20120608
  Serious: Yes (Other)
  Sender: FDA-Public Use
  Company Number: 2012SP003491

PATIENT

DRUGS (2)
  1. REBETOL [Suspect]
     Indication: HEPATITIS C
     Dosage: ;QD;PO
     Route: 048
  2. PEG-INTRON [Suspect]
     Indication: HEPATITIS C
     Dosage: 0.75 MCG/KG;QW;SC
     Route: 058

REACTIONS (10)
  - HEPATIC NEOPLASM MALIGNANT [None]
  - NEPHROTIC SYNDROME [None]
  - SPINAL COMPRESSION FRACTURE [None]
  - THROMBOCYTOPENIA [None]
  - ANAEMIA [None]
  - FATIGUE [None]
  - HAEMOGLOBIN DECREASED [None]
  - STEVENS-JOHNSON SYNDROME [None]
  - POLYMYOSITIS [None]
  - DEPRESSION [None]
